FAERS Safety Report 18456792 (Version 1)
Quarter: 2020Q4

REPORT INFORMATION
  Report Type: Spontaneous
  Country: US (occurrence: US)
  Receive Date: 20201103
  Receipt Date: 20201103
  Transmission Date: 20210114
  Serious: No
  Sender: FDA-Public Use
  Company Number: US-TEVA-2020-US-1844417

PATIENT
  Age: 45 Year
  Sex: Male

DRUGS (3)
  1. LACTAID [Concomitant]
     Active Substance: LACTASE
  2. BUPRENORPHINE SL [Suspect]
     Active Substance: BUPRENORPHINE
     Route: 060
  3. ALLEGRA [Concomitant]
     Active Substance: FEXOFENADINE HYDROCHLORIDE

REACTIONS (2)
  - Oedema peripheral [Not Recovered/Not Resolved]
  - Rash [Not Recovered/Not Resolved]
